FAERS Safety Report 12948186 (Version 2)
Quarter: 2017Q1

REPORT INFORMATION
  Report Type: Spontaneous
  Country: GB (occurrence: GB)
  Receive Date: 20161117
  Receipt Date: 20170213
  Transmission Date: 20170428
  Serious: Yes (Hospitalization, Other)
  Sender: FDA-Public Use
  Company Number: GB-ACCORD-045585

PATIENT
  Age: 88 Year
  Sex: Female

DRUGS (2)
  1. ALENDRONATE SODIUM/ALENDRONIC ACID [Concomitant]
     Indication: BONE DISORDER
     Dates: start: 2013, end: 2014
  2. METHOTREXATE. [Suspect]
     Active Substance: METHOTREXATE
     Indication: ARTHRITIS
     Dates: start: 201404, end: 201404

REACTIONS (2)
  - Pulmonary fibrosis [Not Recovered/Not Resolved]
  - Lower respiratory tract infection [Unknown]

NARRATIVE: CASE EVENT DATE: 201404
